FAERS Safety Report 5877502-4 (Version None)
Quarter: 2008Q3

REPORT INFORMATION
  Report Type: 
  Country: None (occurrence: None)
  Receive Date: 20080911
  Receipt Date: 20080903
  Transmission Date: 20090109
  Serious: Yes (Other)
  Sender: FDA-Public Use
  Company Number: JP-WYE-H04871008

PATIENT
  Sex: Female

DRUGS (4)
  1. HYPEN [Suspect]
     Indication: NASOPHARYNGITIS
     Route: 048
     Dates: start: 20080609, end: 20080612
  2. MAGNESIUM OXIDE [Concomitant]
     Indication: NASOPHARYNGITIS
     Dosage: UNKNOWN
     Route: 048
     Dates: start: 20080609, end: 20080612
  3. TERBINAFINE HCL [Concomitant]
     Dosage: UNKNOWN
     Dates: end: 20080612
  4. GATIFLOXACIN [Suspect]
     Indication: NASOPHARYNGITIS
     Route: 048
     Dates: start: 20080609, end: 20080612

REACTIONS (1)
  - HEPATITIS [None]
